FAERS Safety Report 9284270 (Version 1)
Quarter: 2013Q2

REPORT INFORMATION
  Report Type: Spontaneous
  Country: US (occurrence: US)
  Receive Date: 20130510
  Receipt Date: 20130510
  Transmission Date: 20140414
  Serious: No
  Sender: FDA-Public Use
  Company Number: US-BAYER-2013-058897

PATIENT
  Age: 86 Year
  Sex: Female
  Weight: 71.2 kg

DRUGS (3)
  1. ALEVE TABLET [Suspect]
     Indication: BACK PAIN
     Dosage: 1 DF, QD
     Route: 048
     Dates: start: 201301
  2. SYNTHROID [Concomitant]
  3. RANITIDINE [Concomitant]

REACTIONS (2)
  - Incorrect drug administration duration [None]
  - Alopecia [Not Recovered/Not Resolved]
